FAERS Safety Report 4485761-8 (Version None)
Quarter: 2004Q4

REPORT INFORMATION
  Report Type: 
  Country: None (occurrence: None)
  Receive Date: 20041026
  Receipt Date: 20041015
  Transmission Date: 20050328
  Serious: Yes (Hospitalization)
  Sender: FDA-Public Use
  Company Number: FR-JNJFOC-20041004838

PATIENT
  Age: 50 Year
  Sex: Female

DRUGS (9)
  1. ACETAMINOPHEN AND TRAMADOL HCL [Suspect]
     Indication: MIGRAINE
     Route: 049
  2. VOLTAREN [Concomitant]
  3. ZOMIG [Concomitant]
  4. TAHOR [Concomitant]
  5. BRONCHODUAL [Concomitant]
  6. BRONCHODUAL [Concomitant]
  7. ZAMACORT [Concomitant]
  8. ATARAX [Concomitant]
  9. IZILOX [Concomitant]

REACTIONS (1)
  - ASTHMA [None]
